FAERS Safety Report 5104461-4 (Version None)
Quarter: 2006Q3

REPORT INFORMATION
  Report Type: 
  Country: None (occurrence: None)
  Receive Date: 20060911
  Receipt Date: 20060830
  Transmission Date: 20061208
  Serious: Yes (Life-Threatening)
  Sender: FDA-Public Use
  Company Number: AT200607000176

PATIENT
  Age: 39 Year
  Sex: Female
  Weight: 80 kg

DRUGS (1)
  1. ZYPREXA [Suspect]
     Indication: SCHIZOPHRENIA
     Dosage: 5 MG, DAILY (1/D), ORAL
     Route: 048
     Dates: end: 20060501

REACTIONS (8)
  - ANXIETY [None]
  - CHEST PAIN [None]
  - EXTRASYSTOLES [None]
  - HYPOTENSION [None]
  - REFUSAL OF TREATMENT BY PATIENT [None]
  - RESTLESSNESS [None]
  - SLEEP DISORDER [None]
  - VENTRICULAR TACHYCARDIA [None]
